FAERS Safety Report 23675538 (Version 7)
Quarter: 2024Q3

REPORT INFORMATION
  Report Type: Spontaneous
  Country: US (occurrence: US)
  Receive Date: 20240327
  Receipt Date: 20240820
  Transmission Date: 20241017
  Serious: No
  Sender: NOVARTIS
  Company Number: US-002147023-NVSC2024US065153

PATIENT

DRUGS (2)
  1. COSENTYX [Suspect]
     Active Substance: SECUKINUMAB
     Indication: Product used for unknown indication
     Dosage: UNK
     Route: 065
  2. COSENTYX [Suspect]
     Active Substance: SECUKINUMAB
     Dosage: 150 MG, QMO (FROM AUGUST-END OF LAST MONTH)
     Route: 065

REACTIONS (4)
  - Arthropod sting [Unknown]
  - Adrenal disorder [Unknown]
  - Injection site injury [Unknown]
  - Drug ineffective [Unknown]
